FAERS Safety Report 17062208 (Version 2)
Quarter: 2019Q4

REPORT INFORMATION
  Report Type: Report from Study
  Country: NL (occurrence: NL)
  Receive Date: 20191122
  Receipt Date: 20191203
  Transmission Date: 20200122
  Serious: Yes (Disabling)
  Sender: FDA-Public Use
  Company Number: NL-EMD SERONO-9130019

PATIENT
  Age: 43 Year
  Sex: Female

DRUGS (2)
  1. REBIF [Suspect]
     Active Substance: INTERFERON BETA-1A
     Route: 058
  2. REBIF [Suspect]
     Active Substance: INTERFERON BETA-1A
     Indication: RELAPSING-REMITTING MULTIPLE SCLEROSIS
     Dosage: UNSPECIFIED DOSE
     Route: 058

REACTIONS (4)
  - Influenza like illness [Not Recovered/Not Resolved]
  - Injection site erythema [Recovering/Resolving]
  - Disability [Unknown]
  - Balance disorder [Unknown]
